FAERS Safety Report 6966175-5 (Version None)
Quarter: 2010Q3

REPORT INFORMATION
  Report Type: 
  Country: None (occurrence: None)
  Receive Date: 20100903
  Receipt Date: 20100823
  Transmission Date: 20110219
  Serious: Yes (Other)
  Sender: FDA-Public Use
  Company Number: DE-ELI_LILLY_AND_COMPANY-DE201008008135

PATIENT
  Sex: Female

DRUGS (8)
  1. PEMETREXED [Suspect]
     Indication: OVARIAN CANCER
     Dosage: 700 MG/M2, UNK
     Dates: start: 20050701
  2. PEMETREXED [Suspect]
     Dosage: UNK, OTHER (EVERY 21 DAYS)
     Route: 042
  3. CARBOPLATIN [Concomitant]
     Indication: OVARIAN CANCER
     Dates: start: 20100701
  4. CARBOPLATIN [Concomitant]
     Dosage: UNK, OTHER (EVERY 21 DAYS)
     Route: 042
  5. SALINE [Concomitant]
     Dosage: 0.9 %, OTHER (EVERY 21 DAYS)
     Route: 042
  6. FOLIC ACID [Concomitant]
     Dosage: 350-1000 UG, DAILY (1/D)
     Route: 048
  7. VITAMIN B-12 [Concomitant]
     Dosage: 1000 UG, OTHER (EVERY 9 WEEKS)
     Route: 030
  8. DEXAMETHASONE [Concomitant]
     Indication: PROPHYLAXIS
     Dosage: 4 MG, 2/D
     Route: 048

REACTIONS (1)
  - DYSPNOEA [None]
